FAERS Safety Report 18477550 (Version 1)
Quarter: 2020Q4

REPORT INFORMATION
  Report Type: Spontaneous
  Country: US (occurrence: US)
  Receive Date: 20201107
  Receipt Date: 20201107
  Transmission Date: 20210114
  Serious: Yes (Other)
  Sender: FDA-Public Use
  Company Number: US-PURDUE-USA-2020-0170350

PATIENT

DRUGS (2)
  1. OXYCONTIN [Suspect]
     Active Substance: OXYCODONE HYDROCHLORIDE
     Indication: PAIN
     Dosage: UNK
     Route: 048
  2. ROXICODONE [Suspect]
     Active Substance: OXYCODONE HYDROCHLORIDE
     Indication: PAIN
     Dosage: UNK
     Route: 065

REACTIONS (14)
  - Ill-defined disorder [Unknown]
  - Impaired self-care [Unknown]
  - Apathy [Unknown]
  - Drug dependence [Unknown]
  - Anxiety [Unknown]
  - Thinking abnormal [Unknown]
  - Suicidal ideation [Unknown]
  - Depression [Unknown]
  - Pain [Unknown]
  - Mental disorder [Unknown]
  - Personality change [Unknown]
  - Drug tolerance [Unknown]
  - Emotional distress [Unknown]
  - Cerebral disorder [Unknown]
